FAERS Safety Report 5160448-7 (Version None)
Quarter: 2006Q4

REPORT INFORMATION
  Report Type: 
  Country: None (occurrence: None)
  Receive Date: 20061121
  Receipt Date: 20061114
  Transmission Date: 20070319
  Serious: Yes (Life-Threatening, Other)
  Sender: FDA-Public Use
  Company Number: 231536

PATIENT
  Age: 87 Year
  Sex: Female
  Weight: 70.7 kg

DRUGS (13)
  1. LUCENTIS [Suspect]
     Indication: MACULAR DEGENERATION
     Dosage: INTRAVITREAL
     Route: 050
     Dates: start: 20060713
  2. LUCENTIS [Suspect]
  3. BUMEX [Concomitant]
  4. LEVOXYL [Concomitant]
  5. DEMADEX [Concomitant]
  6. ZAROXOLYN [Concomitant]
  7. BIO-QUINONE Q10 (UBIDECARENONE) [Concomitant]
  8. CONCOMITANT DRUG (GENERIC COMPONENT(S) [Concomitant]
  9. MILK THISTLE (SILYMARIN) [Concomitant]
  10. CALCIUM (CALCIUM NOS) [Concomitant]
  11. KLOR-CON [Concomitant]
  12. OCUVITE (ASCORBIC ACID, BETA CAROTENE, COPPER NOS, LUTEIN, SELENIUM NO [Concomitant]
  13. CHERRY [Concomitant]

REACTIONS (4)
  - ASTHENIA [None]
  - CHILLS [None]
  - DYSPNOEA [None]
  - NAUSEA [None]
